FAERS Safety Report 10240588 (Version 1)
Quarter: 2014Q2

REPORT INFORMATION
  Report Type: Spontaneous
  Country: US (occurrence: None)
  Receive Date: 20140613
  Receipt Date: 20140613
  Transmission Date: 20141212
  Serious: Yes (Disabling)
  Sender: FDA-Public Use
  Company Number: None

PATIENT
  Age: 46 Year
  Sex: Female
  Weight: 5.9 kg

DRUGS (8)
  1. LATUDA [Suspect]
     Indication: AFFECT LABILITY
     Dosage: 20 MG ONE BOTTLE - 1 TABLET PER DAY ONE PILL, ONCE DAILY, BY MOUTH
     Route: 048
     Dates: start: 20140220, end: 20140327
  2. LATUDA [Suspect]
     Indication: ANXIETY
     Dosage: 20 MG ONE BOTTLE - 1 TABLET PER DAY ONE PILL, ONCE DAILY, BY MOUTH
     Route: 048
     Dates: start: 20140220, end: 20140327
  3. LATUDA [Suspect]
     Indication: DEPRESSION
     Dosage: 20 MG ONE BOTTLE - 1 TABLET PER DAY ONE PILL, ONCE DAILY, BY MOUTH
     Route: 048
     Dates: start: 20140220, end: 20140327
  4. LURASIDONE [Suspect]
     Dosage: 40 MG OTHER BOTTLE - 1 TABLET PER DAY ONE PILL, ONCE DAILY
  5. DEXILANT [Concomitant]
  6. LEXAPRO (ESCITALOPRAM) [Concomitant]
  7. ANTACIDS [Concomitant]
  8. PEPTO BISMOL (AS NEEDED) [Concomitant]

REACTIONS (14)
  - Fear [None]
  - Palpitations [None]
  - Blood pressure increased [None]
  - Vomiting [None]
  - Tremor [None]
  - Panic attack [None]
  - Feeling jittery [None]
  - Suicidal ideation [None]
  - Condition aggravated [None]
  - Muscle twitching [None]
  - Hypoaesthesia oral [None]
  - Muscle spasms [None]
  - Dyskinesia [None]
  - Contraindication to medical treatment [None]
